FAERS Safety Report 5859548-5 (Version None)
Quarter: 2008Q3

REPORT INFORMATION
  Report Type: 
  Country: None (occurrence: None)
  Receive Date: 20080827
  Receipt Date: 20080821
  Transmission Date: 20090109
  Serious: Yes (Hospitalization)
  Sender: FDA-Public Use
  Company Number: A0744586A

PATIENT
  Age: 45 Year
  Sex: Male
  Weight: 84.5 kg

DRUGS (8)
  1. AVANDIA [Suspect]
     Indication: TYPE 2 DIABETES MELLITUS
     Dosage: 4MG PER DAY
     Route: 048
     Dates: start: 19990701, end: 20020801
  2. GLYNASE [Concomitant]
  3. LIPITOR [Concomitant]
  4. CRESTOR [Concomitant]
  5. LOTREL [Concomitant]
  6. NITROGLYCERIN [Concomitant]
  7. COZAAR [Concomitant]
  8. PLAVIX [Concomitant]

REACTIONS (5)
  - ARTERIOVENOUS MALFORMATION [None]
  - CARDIAC FAILURE CONGESTIVE [None]
  - DEPRESSION [None]
  - HYPERTENSION [None]
  - MYOCARDIAL INFARCTION [None]
